FAERS Safety Report 18131141 (Version 1)
Quarter: 2020Q3

REPORT INFORMATION
  Report Type: Spontaneous
  Country: CA (occurrence: CA)
  Receive Date: 20200810
  Receipt Date: 20200810
  Transmission Date: 20201103
  Serious: Yes (Other)
  Sender: FDA-Public Use
  Company Number: CA-PFIZER INC-2020300962

PATIENT
  Age: 38 Year
  Sex: Male

DRUGS (2)
  1. ESTRADIOL. [Suspect]
     Active Substance: ESTRADIOL
     Indication: TESTIS CANCER
     Dosage: UNK
  2. SPIRONOLACTONE. [Suspect]
     Active Substance: SPIRONOLACTONE
     Indication: TESTIS CANCER
     Dosage: UNK

REACTIONS (9)
  - Back pain [Unknown]
  - Lymphadenopathy [Unknown]
  - Weight decreased [Unknown]
  - Pelvic venous thrombosis [Unknown]
  - Retroperitoneal mass [Unknown]
  - Off label use [Unknown]
  - Product use in unapproved indication [Unknown]
  - Testicular mass [Unknown]
  - Abdominal pain [Unknown]
